FAERS Safety Report 9659332 (Version 3)
Quarter: 2013Q4

REPORT INFORMATION
  Report Type: Report from Study
  Country: US (occurrence: US)
  Receive Date: 20131031
  Receipt Date: 20131120
  Transmission Date: 20140711
  Serious: Yes (Death)
  Sender: FDA-Public Use
  Company Number: US-JNJFOC-20131017744

PATIENT
  Age: 80 Year
  Sex: Female
  Weight: 55.79 kg

DRUGS (22)
  1. CISAPRIDE [Suspect]
     Indication: GASTROINTESTINAL MOTILITY DISORDER
     Route: 048
     Dates: start: 20100710, end: 20131016
  2. CISAPRIDE [Suspect]
     Indication: GASTROOESOPHAGEAL REFLUX DISEASE
     Route: 048
     Dates: start: 20100710, end: 20131016
  3. WELLBUTRIN [Concomitant]
     Indication: ANXIETY
     Route: 048
     Dates: start: 20120305, end: 20131026
  4. WELLBUTRIN [Concomitant]
     Indication: DEPRESSION
     Route: 048
     Dates: start: 20120305, end: 20131026
  5. MULTIVITAMINS [Concomitant]
     Indication: NUTRITIONAL SUPPLEMENTATION
     Route: 048
     Dates: start: 1975, end: 20131026
  6. XANAX [Concomitant]
     Indication: ANXIETY
     Dosage: IF NEEDED
     Route: 048
     Dates: start: 200909, end: 20131026
  7. ASPIRIN [Concomitant]
     Indication: CARDIOVASCULAR EVENT PROPHYLAXIS
     Route: 048
     Dates: start: 20020716, end: 20131026
  8. SINEMET [Concomitant]
     Indication: PARKINSON^S DISEASE
     Dosage: 25/100 MG
     Route: 048
     Dates: start: 20101215, end: 201104
  9. SINEMET [Concomitant]
     Indication: PARKINSON^S DISEASE
     Dosage: 25-100 MG
     Route: 048
     Dates: start: 201104, end: 20131026
  10. SINEMET [Concomitant]
     Indication: PARKINSON^S DISEASE
     Dosage: 25-100MG
     Route: 048
     Dates: start: 200909, end: 20101214
  11. METANX [Concomitant]
     Indication: NEUROPATHY PERIPHERAL
     Dosage: 2-25-28 MG
     Route: 048
     Dates: start: 2007, end: 20131026
  12. METOPROLOL [Concomitant]
     Indication: HEART RATE
     Route: 048
     Dates: start: 20020716, end: 20131026
  13. METOPROLOL [Concomitant]
     Indication: HYPERTENSION
     Route: 048
     Dates: start: 20020716, end: 20131026
  14. ACCUPRIL [Concomitant]
     Indication: HYPERTENSION
     Route: 048
     Dates: start: 20090716, end: 20131026
  15. MILK OF MAGNESIA [Concomitant]
     Indication: CONSTIPATION
     Route: 048
     Dates: start: 20100629, end: 20131026
  16. IMODIUM [Concomitant]
     Indication: DIARRHOEA
     Route: 048
     Dates: start: 20100719, end: 20131026
  17. COLA SYRUP [Concomitant]
     Indication: NAUSEA
     Dosage: 1 TEASPOON, AS NEEDED (PRN)
     Route: 048
     Dates: start: 20100913, end: 20131026
  18. VITAMIN B12 [Concomitant]
     Indication: FATIGUE
     Dosage: EVERY OTHER WEEK
     Route: 030
     Dates: start: 20110115, end: 20131026
  19. PANTOPRAZOLE [Concomitant]
     Indication: DYSPHAGIA
     Route: 048
     Dates: start: 20130422, end: 20131026
  20. DEXAMETHASONE [Concomitant]
     Indication: ENERGY INCREASED
     Route: 048
     Dates: start: 20130918, end: 20131026
  21. ESTRADIOL [Concomitant]
     Indication: URETHRAL CARUNCLE
     Dosage: VA
     Route: 065
     Dates: start: 20130306, end: 20131026
  22. PERCOCET [Concomitant]
     Indication: PAIN
     Dosage: 5-325 MG, AS NEEDED (PRN)
     Route: 048
     Dates: start: 20121101, end: 20131026

REACTIONS (1)
  - Lung neoplasm malignant [Fatal]
